FAERS Safety Report 16405586 (Version 1)
Quarter: 2019Q2

REPORT INFORMATION
  Report Type: Spontaneous
  Country: IT (occurrence: IT)
  Receive Date: 20190607
  Receipt Date: 20190607
  Transmission Date: 20190711
  Serious: Yes (Other)
  Sender: FDA-Public Use
  Company Number: IT-MYLANLABS-2019M1053073

PATIENT
  Age: 12 Year
  Sex: Male

DRUGS (2)
  1. MAVERAL [Suspect]
     Active Substance: FLUVOXAMINE MALEATE
     Indication: MENTAL DISORDER
     Dosage: 100 MILLIGRAM, QD
     Route: 048
     Dates: start: 20170215, end: 20170404
  2. ABILIFY [Suspect]
     Active Substance: ARIPIPRAZOLE
     Indication: MENTAL DISORDER
     Dosage: 15 MILLIGRAM, QD
     Route: 048
     Dates: start: 20170215, end: 20180404

REACTIONS (8)
  - Dandruff [Recovering/Resolving]
  - Abdominal pain upper [Recovering/Resolving]
  - Hyperhidrosis [Recovering/Resolving]
  - Muscle spasms [Recovering/Resolving]
  - Transaminases increased [Recovering/Resolving]
  - Myalgia [Recovering/Resolving]
  - Hepatic steatosis [Recovering/Resolving]
  - Chest pain [Recovering/Resolving]

NARRATIVE: CASE EVENT DATE: 20180301
